FAERS Safety Report 21684743 (Version 1)
Quarter: 2022Q4

REPORT INFORMATION
  Report Type: Report from Study
  Country: US (occurrence: US)
  Receive Date: 20221205
  Receipt Date: 20221205
  Transmission Date: 20230113
  Serious: No
  Sender: FDA-Public Use
  Company Number: US-ABBVIE-4218570

PATIENT
  Age: 52 Year
  Sex: Male
  Weight: 124.73 kg

DRUGS (1)
  1. HUMIRA [Suspect]
     Active Substance: ADALIMUMAB
     Indication: Hidradenitis
     Dosage: FORM STRENGTH: 40MG
     Route: 058
     Dates: start: 2020

REACTIONS (2)
  - Wound complication [Recovering/Resolving]
  - Infected cyst [Recovering/Resolving]

NARRATIVE: CASE EVENT DATE: 20221101
